FAERS Safety Report 8264488-0 (Version None)
Quarter: 2012Q2

REPORT INFORMATION
  Report Type: 
  Country: None (occurrence: None)
  Receive Date: 20120406
  Receipt Date: 20120327
  Transmission Date: 20120825
  Serious: Yes (Other)
  Sender: FDA-Public Use
  Company Number: US-SANOFI-AVENTIS-2012SA021029

PATIENT
  Sex: Male

DRUGS (2)
  1. LANTUS [Suspect]
     Dosage: 20-25 UNITS TWICE DAILY
     Route: 058
     Dates: start: 20111005
  2. SOLOSTAR [Suspect]
     Dates: start: 20111005

REACTIONS (3)
  - ILL-DEFINED DISORDER [None]
  - MOBILITY DECREASED [None]
  - OEDEMA PERIPHERAL [None]
